FAERS Safety Report 6343221-3 (Version None)
Quarter: 2009Q3

REPORT INFORMATION
  Report Type: 
  Country: None (occurrence: None)
  Receive Date: 20090903
  Receipt Date: 20090819
  Transmission Date: 20100115
  Serious: Yes (Hospitalization)
  Sender: FDA-Public Use
  Company Number: 2009BM000166

PATIENT
  Age: 11 Year
  Sex: Female
  Weight: 19.2 kg

DRUGS (2)
  1. NAGLAZYME [Suspect]
     Indication: MUCOPOLYSACCHARIDOSIS VI
     Dosage: 19 ML; QW; IVDRIP
     Route: 041
     Dates: start: 20080806, end: 20090708
  2. COLLYRIUM [Concomitant]

REACTIONS (4)
  - CHOKING [None]
  - DYSPHAGIA [None]
  - INFUSION RELATED REACTION [None]
  - PNEUMONIA [None]
